FAERS Safety Report 24126348 (Version 1)
Quarter: 2024Q3

REPORT INFORMATION
  Report Type: Report from Study
  Country: US (occurrence: US)
  Receive Date: 20240723
  Receipt Date: 20240723
  Transmission Date: 20241016
  Serious: Yes (Hospitalization)
  Sender: ACCORD
  Company Number: US-Accord-436432

PATIENT
  Sex: Female
  Weight: 90.72 kg

DRUGS (8)
  1. CLOZAPINE [Suspect]
     Active Substance: CLOZAPINE
     Indication: Schizoaffective disorder bipolar type
     Dosage: 125MG TO 150MG, TO 175MG DAILY AND?THEN IT WAS JACKED UP TO 200MG DAILY
     Route: 048
  2. DEPAKOTE [Concomitant]
     Active Substance: DIVALPROEX SODIUM
     Indication: Product used for unknown indication
  3. HALDOL [Concomitant]
     Active Substance: HALOPERIDOL
     Indication: Product used for unknown indication
  4. LITHIUM [Concomitant]
     Active Substance: LITHIUM
     Indication: Product used for unknown indication
  5. CLOZAPINE [Suspect]
     Active Substance: CLOZAPINE
     Indication: Schizoaffective disorder bipolar type
     Route: 048
  6. CLOZAPINE [Suspect]
     Active Substance: CLOZAPINE
     Indication: Schizoaffective disorder bipolar type
     Route: 048
     Dates: start: 2022
  7. CLOZAPINE [Suspect]
     Active Substance: CLOZAPINE
     Indication: Schizoaffective disorder bipolar type
     Route: 048
  8. CLOZAPINE [Suspect]
     Active Substance: CLOZAPINE
     Indication: Schizoaffective disorder bipolar type
     Route: 048

REACTIONS (10)
  - Sepsis [Unknown]
  - Thirst [Unknown]
  - Faecaloma [Unknown]
  - Fall [Unknown]
  - Dizziness [Unknown]
  - Lethargy [Unknown]
  - Seizure [Unknown]
  - Product dose omission issue [Unknown]
  - Abdominal distension [Unknown]
  - Homicidal ideation [Unknown]
